FAERS Safety Report 18368947 (Version 1)
Quarter: 2020Q4

REPORT INFORMATION
  Report Type: Spontaneous
  Country: US (occurrence: US)
  Receive Date: 20201011
  Receipt Date: 20201011
  Transmission Date: 20210114
  Serious: No
  Sender: FDA-Public Use
  Company Number: US-TEVA-2020-US-1836712

PATIENT
  Sex: Female

DRUGS (14)
  1. COPAXONE [Suspect]
     Active Substance: GLATIRAMER ACETATE
     Indication: MULTIPLE SCLEROSIS
     Dosage: FORM STRENGTH: UNKNOWN
     Route: 065
  2. AMITRIPTYLINE [Concomitant]
     Active Substance: AMITRIPTYLINE
  3. FLUOXETINE [Concomitant]
     Active Substance: FLUOXETINE HYDROCHLORIDE
  4. BACLOFEN. [Concomitant]
     Active Substance: BACLOFEN
  5. HYDROCHLOROTHIAZIDE. [Concomitant]
     Active Substance: HYDROCHLOROTHIAZIDE
  6. MYRBETRIQ [Concomitant]
     Active Substance: MIRABEGRON
  7. BOTOX [Concomitant]
     Active Substance: ONABOTULINUMTOXINA
  8. ULTRAFLEX AFO [Concomitant]
  9. GABAPENTIN. [Concomitant]
     Active Substance: GABAPENTIN
  10. MULTIVITAMIN [Concomitant]
     Active Substance: VITAMINS
  11. TRAMADOL. [Concomitant]
     Active Substance: TRAMADOL
  12. AMANTADINE. [Concomitant]
     Active Substance: AMANTADINE HYDROCHLORIDE
  13. AMLODIPINE [Concomitant]
     Active Substance: AMLODIPINE BESYLATE
  14. COLECALCIFEROL [Concomitant]
     Active Substance: CHOLECALCIFEROL

REACTIONS (1)
  - Fatigue [Unknown]
